FAERS Safety Report 10223892 (Version 1)
Quarter: 2014Q2

REPORT INFORMATION
  Report Type: Spontaneous
  Country: US (occurrence: None)
  Receive Date: 20140605
  Receipt Date: 20140605
  Transmission Date: 20141212
  Serious: Yes (Death, Other)
  Sender: FDA-Public Use
  Company Number: ADR-2014-00940

PATIENT
  Age: 67 Year
  Sex: Male

DRUGS (4)
  1. BACLOFEN [Suspect]
     Indication: CANCER PAIN
     Dosage: DAY
  2. DILAUDID [Suspect]
     Indication: CANCER PAIN
     Dosage: DAY
  3. BUPIVACAINE [Suspect]
     Dosage: 22.473MG/DAY
  4. CLONIDINE [Suspect]
     Dosage: 299.65UG/DAY.

REACTIONS (1)
  - Prostate cancer [None]
